FAERS Safety Report 7984493-9 (Version None)
Quarter: 2011Q4

REPORT INFORMATION
  Report Type: 
  Country: None (occurrence: None)
  Receive Date: 20111214
  Receipt Date: 20111205
  Transmission Date: 20120403
  Serious: Yes (Hospitalization, Other)
  Sender: FDA-Public Use
  Company Number: 2010JP001884

PATIENT
  Age: 5 Year
  Sex: Male

DRUGS (8)
  1. PREDNISOLONE [Concomitant]
  2. ANTI-THYMOCYTE GLOBULIN NOS [Concomitant]
  3. THYMOGLOBULIN [Concomitant]
  4. METHOTREXATE [Concomitant]
  5. ETOPOSIDE [Concomitant]
  6. CYCLOPHOSPHAMIDE [Concomitant]
  7. PROGRAF [Suspect]
     Indication: PROPHYLAXIS AGAINST GRAFT VERSUS HOST DISEASE
     Dosage: 0.03 MG/KG, /D
     Dates: start: 20090806
  8. PROGRAF [Suspect]
     Indication: PROPHYLAXIS AGAINST GRAFT VERSUS HOST DISEASE
     Dosage: ORAL
     Route: 048

REACTIONS (5)
  - PENILE ABSCESS [None]
  - DRUG INEFFECTIVE [None]
  - BACTERIAL INFECTION [None]
  - ACUTE GRAFT VERSUS HOST DISEASE [None]
  - CYTOMEGALOVIRUS VIRAEMIA [None]
